FAERS Safety Report 18626984 (Version 3)
Quarter: 2025Q1

REPORT INFORMATION
  Report Type: Report from Study
  Country: BG (occurrence: BG)
  Receive Date: 20201217
  Receipt Date: 20250127
  Transmission Date: 20250408
  Serious: No
  Sender: ROCHE
  Company Number: BG-ROCHE-2731241

PATIENT
  Age: 47 Year
  Sex: Male
  Weight: 74.5 kg

DRUGS (16)
  1. OCRELIZUMAB [Suspect]
     Active Substance: OCRELIZUMAB
     Indication: Multiple sclerosis
     Dosage: 300 MG/ 250 ML?Q6M
     Route: 040
     Dates: start: 20200724, end: 20200724
  2. OCRELIZUMAB [Suspect]
     Active Substance: OCRELIZUMAB
     Dosage: 300 MG/ 250 ML
     Route: 040
     Dates: start: 20200806, end: 20200806
  3. OCRELIZUMAB [Suspect]
     Active Substance: OCRELIZUMAB
     Dosage: 600 MG/500 ML
     Route: 040
     Dates: start: 20210126, end: 20210126
  4. OCRELIZUMAB [Suspect]
     Active Substance: OCRELIZUMAB
     Route: 040
     Dates: start: 20210722, end: 20210722
  5. OCRELIZUMAB [Suspect]
     Active Substance: OCRELIZUMAB
     Route: 040
     Dates: start: 20220809, end: 20220809
  6. OCRELIZUMAB [Suspect]
     Active Substance: OCRELIZUMAB
     Route: 040
     Dates: start: 20230816, end: 20230816
  7. OCRELIZUMAB [Suspect]
     Active Substance: OCRELIZUMAB
     Route: 040
     Dates: start: 20230209, end: 20230209
  8. OCRELIZUMAB [Suspect]
     Active Substance: OCRELIZUMAB
     Route: 040
     Dates: start: 20220202, end: 20220202
  9. OCRELIZUMAB [Suspect]
     Active Substance: OCRELIZUMAB
     Route: 040
     Dates: start: 20240216, end: 20240216
  10. BISOPROLOL [Concomitant]
     Active Substance: BISOPROLOL
     Indication: Product used for unknown indication
     Route: 048
     Dates: start: 2018
  11. HYDROCHLOROTHIAZIDE [Concomitant]
     Active Substance: HYDROCHLOROTHIAZIDE
     Indication: Product used for unknown indication
     Route: 048
     Dates: start: 2018
  12. AZITHROMYCIN [Concomitant]
     Active Substance: AZITHROMYCIN
     Route: 048
     Dates: start: 20201106, end: 20201115
  13. MIRABEGRON [Concomitant]
     Active Substance: MIRABEGRON
     Indication: Product used for unknown indication
     Route: 048
     Dates: start: 2019
  14. METHYLPREDNISOLONE [Concomitant]
     Active Substance: METHYLPREDNISOLONE
     Route: 040
     Dates: start: 20210126, end: 20210126
  15. ACETAMINOPHEN [Concomitant]
     Active Substance: ACETAMINOPHEN
  16. ALERGOSAN [Concomitant]
     Route: 048
     Dates: start: 20210126, end: 20210126

REACTIONS (1)
  - COVID-19 [Recovered/Resolved]

NARRATIVE: CASE EVENT DATE: 20201106
